FAERS Safety Report 9188508 (Version 1)
Quarter: 2013Q1

REPORT INFORMATION
  Report Type: Spontaneous
  Country: GB (occurrence: GB)
  Receive Date: 20130325
  Receipt Date: 20130325
  Transmission Date: 20140127
  Serious: Yes (Other)
  Sender: FDA-Public Use
  Company Number: PHHY2013GB027287

PATIENT
  Age: 23 Year
  Sex: Male
  Weight: 98 kg

DRUGS (5)
  1. METRONIDAZOLE [Suspect]
     Indication: EPIDIDYMITIS
     Route: 048
     Dates: start: 20130301, end: 20130307
  2. DEXEDRINE [Concomitant]
     Indication: ATTENTION DEFICIT/HYPERACTIVITY DISORDER
     Dosage: 10 MG, BID
  3. DOXYCYCLINE [Concomitant]
     Indication: EPIDIDYMITIS
  4. CEFTRIAXONE [Concomitant]
     Indication: EPIDIDYMITIS
  5. CIPROFLOXACIN [Concomitant]
     Indication: EPIDIDYMITIS

REACTIONS (8)
  - Insomnia [Not Recovered/Not Resolved]
  - Agitated depression [Not Recovered/Not Resolved]
  - Anxiety [Not Recovered/Not Resolved]
  - Panic attack [Unknown]
  - Crying [Unknown]
  - Paranoia [Unknown]
  - Urticaria [Not Recovered/Not Resolved]
  - Depressed mood [Unknown]
